FAERS Safety Report 8948232 (Version 1)
Quarter: 2012Q4

REPORT INFORMATION
  Report Type: Spontaneous
  Country: BR (occurrence: None)
  Receive Date: 20121127
  Receipt Date: 20121127
  Transmission Date: 20130627
  Serious: Yes (Other)
  Sender: FDA-Public Use
  Company Number: DSJ-2012-21397

PATIENT
  Age: 64 Year
  Sex: Female
  Weight: 67 kg

DRUGS (2)
  1. BENICAR ANLO (OLMESARTAN MEDOXOMIL, AMLODIPINE BESILATE) (TABLET) (OLMESARTAN MEDOXOMIL, AMLODIPINE) [Suspect]
     Indication: HYPERTENSION
     Dosage: 40/5 mg (1 in 1 D), Per oral
     Route: 048
     Dates: start: 2011, end: 2012
  2. HYDROCHLOROTHIAZIDE [Concomitant]

REACTIONS (2)
  - Hypotension [None]
  - Coma [None]
